FAERS Safety Report 7313624-9 (Version None)
Quarter: 2011Q1

REPORT INFORMATION
  Report Type: 
  Country: None (occurrence: None)
  Receive Date: 20110225
  Receipt Date: 20110128
  Transmission Date: 20110831
  Serious: No
  Sender: FDA-Public Use
  Company Number: US-B.I. PHARMACEUTICALS,INC./RIDGEFIELD-2011-BP-03064BP

PATIENT
  Age: 75 Year
  Sex: Male

DRUGS (10)
  1. AMIODARONE [Concomitant]
     Dosage: 200 MG
  2. PRADAXA [Suspect]
     Indication: ATRIAL FIBRILLATION
     Dosage: 300 MG
     Route: 048
     Dates: start: 20110127
  3. SYNTHROID [Concomitant]
     Dosage: 50 MG
  4. PULMICORT [Concomitant]
     Dosage: 4 PG
  5. AVODART [Concomitant]
     Dosage: 0.5 MG
  6. ZETIA [Concomitant]
     Dosage: 10 MG
  7. ASPIRIN [Concomitant]
     Dosage: 325 MG
  8. HYDROCHLOROTHIAZIDE [Concomitant]
     Dosage: 12.5 MG
  9. LEXAPRO [Concomitant]
     Dosage: 10 MG
  10. OMEPRAZOLE [Concomitant]
     Dosage: 20 MG

REACTIONS (1)
  - INTERNATIONAL NORMALISED RATIO ABNORMAL [None]
